FAERS Safety Report 8067962-5 (Version None)
Quarter: 2012Q1

REPORT INFORMATION
  Report Type: 
  Country: None (occurrence: None)
  Receive Date: 20120124
  Receipt Date: 20110906
  Transmission Date: 20120608
  Serious: No
  Sender: FDA-Public Use
  Company Number: US-AMGEN-USASP2011045557

PATIENT
  Age: 80 Year
  Sex: Female

DRUGS (4)
  1. PROLIA [Suspect]
     Indication: OSTEOPOROSIS POSTMENOPAUSAL
     Dosage: 60 MG, Q6MO
     Dates: start: 20110601
  2. CALCIUM [Concomitant]
  3. VITAMIN D [Concomitant]
  4. ANTICOAGULANT CITRATE DEXTROSE [Concomitant]

REACTIONS (3)
  - MALAISE [None]
  - BLOOD POTASSIUM INCREASED [None]
  - BLOOD CALCIUM DECREASED [None]
